FAERS Safety Report 13149838 (Version 3)
Quarter: 2017Q2

REPORT INFORMATION
  Report Type: Report from Study
  Country: US (occurrence: US)
  Receive Date: 20170125
  Receipt Date: 20170421
  Transmission Date: 20170830
  Serious: Yes (Hospitalization)
  Sender: FDA-Public Use
  Company Number: US-JNJFOC-20160825261

PATIENT
  Age: 66 Year
  Sex: Male

DRUGS (14)
  1. NORCO [Concomitant]
     Active Substance: ACETAMINOPHEN\HYDROCODONE BITARTRATE
  2. DIGOXIN. [Concomitant]
     Active Substance: DIGOXIN
  3. IMBRUVICA [Suspect]
     Active Substance: IBRUTINIB
     Indication: CHRONIC LYMPHOCYTIC LEUKAEMIA
     Route: 048
     Dates: end: 20160510
  4. ACETAMINOPHEN. [Concomitant]
     Active Substance: ACETAMINOPHEN
  5. SYMBICORT [Concomitant]
     Active Substance: BUDESONIDE\FORMOTEROL FUMARATE DIHYDRATE
  6. BUDESONIDE. [Concomitant]
     Active Substance: BUDESONIDE
  7. FOLIC ACID. [Concomitant]
     Active Substance: FOLIC ACID
  8. PREDNISONE. [Concomitant]
     Active Substance: PREDNISONE
  9. SOTALOL. [Concomitant]
     Active Substance: SOTALOL
  10. IMBRUVICA [Suspect]
     Active Substance: IBRUTINIB
     Indication: CHRONIC LYMPHOCYTIC LEUKAEMIA
     Route: 048
     Dates: start: 2015
  11. ALBUTEROL. [Concomitant]
     Active Substance: ALBUTEROL
  12. AMBIEN [Concomitant]
     Active Substance: ZOLPIDEM TARTRATE
  13. IMBRUVICA [Suspect]
     Active Substance: IBRUTINIB
     Indication: CHRONIC LYMPHOCYTIC LEUKAEMIA
     Route: 048
     Dates: start: 20160527
  14. IMBRUVICA [Suspect]
     Active Substance: IBRUTINIB
     Indication: CHRONIC LYMPHOCYTIC LEUKAEMIA
     Route: 048
     Dates: start: 201507, end: 20160919

REACTIONS (6)
  - Atrial fibrillation [Recovered/Resolved]
  - Immunodeficiency [Unknown]
  - Syncope [Unknown]
  - Hypogammaglobulinaemia [Recovering/Resolving]
  - Cellulitis [Recovered/Resolved with Sequelae]
  - Sepsis [Recovered/Resolved with Sequelae]

NARRATIVE: CASE EVENT DATE: 201605
